FAERS Safety Report 16746672 (Version 1)
Quarter: 2019Q3

REPORT INFORMATION
  Report Type: Spontaneous
  Country: DE (occurrence: DE)
  Receive Date: 20190827
  Receipt Date: 20190827
  Transmission Date: 20191005
  Serious: Yes (Hospitalization)
  Sender: FDA-Public Use
  Company Number: DE-ELI_LILLY_AND_COMPANY-DE201908006793

PATIENT
  Age: 87 Year
  Sex: Female

DRUGS (3)
  1. FORSTEO 250UG/ML [Suspect]
     Active Substance: TERIPARATIDE
     Indication: OSTEOPOROSIS
     Dosage: UNK UNK, UNKNOWN
     Route: 058
     Dates: start: 20180714, end: 20190616
  2. MTX HEXAL [Suspect]
     Active Substance: METHOTREXATE SODIUM
     Indication: RHEUMATIC DISORDER
     Dosage: UNK UNK, UNKNOWN
     Route: 065
  3. CORTISONE [Concomitant]
     Active Substance: CORTISONE
     Indication: RHEUMATIC DISORDER

REACTIONS (16)
  - Cardiac failure [Unknown]
  - Pain [Unknown]
  - Infarction [Unknown]
  - Autoimmune disorder [Recovering/Resolving]
  - Inflammation [Recovering/Resolving]
  - Chest pain [Recovering/Resolving]
  - Hypersomnia [Unknown]
  - Eye swelling [Unknown]
  - Fatigue [Unknown]
  - Supraventricular extrasystoles [Unknown]
  - Arrhythmia [Recovering/Resolving]
  - Peripheral swelling [Unknown]
  - Blood pressure decreased [Recovered/Resolved]
  - Pneumonia [Recovering/Resolving]
  - Feeling abnormal [Unknown]
  - Heart rate increased [Not Recovered/Not Resolved]

NARRATIVE: CASE EVENT DATE: 20181225
